FAERS Safety Report 23847623 (Version 1)
Quarter: 2024Q2

REPORT INFORMATION
  Report Type: Spontaneous
  Country: HU (occurrence: HU)
  Receive Date: 20240513
  Receipt Date: 20240513
  Transmission Date: 20240716
  Serious: Yes (Other)
  Sender: FDA-Public Use
  Company Number: HU-ASTELLAS-2024US011554

PATIENT
  Age: 54 Year
  Sex: Male

DRUGS (2)
  1. ZOLEDRONIC ACID [Suspect]
     Active Substance: ZOLEDRONIC ACID
     Indication: Product used for unknown indication
     Dosage: UNK UNK, UNKNOWN FREQ.
     Route: 065
     Dates: start: 201505, end: 2021
  2. ENZALUTAMIDE [Suspect]
     Active Substance: ENZALUTAMIDE
     Indication: Product used for unknown indication
     Dosage: UNK UNK, CYCLE, (56 CYCLES OF ENZALUTAMIDE)
     Route: 065
     Dates: start: 20190918

REACTIONS (7)
  - Malignant neoplasm progression [Unknown]
  - Cerebellar atrophy [Unknown]
  - Osteonecrosis of jaw [Unknown]
  - Tooth disorder [Unknown]
  - Prostatic specific antigen increased [Not Recovered/Not Resolved]
  - Trigeminal neuralgia [Unknown]
  - Rib fracture [Unknown]

NARRATIVE: CASE EVENT DATE: 20210101
